FAERS Safety Report 5726811-8 (Version None)
Quarter: 2008Q2

REPORT INFORMATION
  Report Type: 
  Country: None (occurrence: None)
  Receive Date: 20080502
  Receipt Date: 20080422
  Transmission Date: 20081010
  Serious: Yes (Other)
  Sender: FDA-Public Use
  Company Number: AR-PFIZER INC-2008034165

PATIENT
  Age: 56 Year
  Sex: Female
  Weight: 53 kg

DRUGS (2)
  1. CHAMPIX [Suspect]
     Indication: SMOKING CESSATION THERAPY
     Route: 048
     Dates: start: 20080316, end: 20080401
  2. ATENOLOL [Concomitant]
     Indication: HYPERTENSION
     Route: 048

REACTIONS (6)
  - CHEST PAIN [None]
  - DIZZINESS [None]
  - EYE PAIN [None]
  - FEAR [None]
  - HYPOAESTHESIA [None]
  - IMPAIRED DRIVING ABILITY [None]
